FAERS Safety Report 20994254 (Version 3)
Quarter: 2022Q3

REPORT INFORMATION
  Report Type: Spontaneous
  Country: AU (occurrence: AU)
  Receive Date: 20220622
  Receipt Date: 20220708
  Transmission Date: 20221027
  Serious: Yes (Other)
  Sender: FDA-Public Use
  Company Number: AU-MYLANLABS-2022M1046610

PATIENT
  Age: 25 Year
  Sex: Male

DRUGS (12)
  1. CLOZARIL [Suspect]
     Active Substance: CLOZAPINE
     Indication: Schizophrenia
     Dosage: UNK (START DATE: 06-JUL-2012)
     Route: 048
  2. CLOZARIL [Suspect]
     Active Substance: CLOZAPINE
     Dosage: UNK (START DATE: 18-JUL-2012)
     Route: 048
  3. CLOZARIL [Suspect]
     Active Substance: CLOZAPINE
     Dosage: UNK (STOP DATE : 06-AUG-2012)
     Route: 065
  4. CLOZARIL [Suspect]
     Active Substance: CLOZAPINE
     Dosage: UNK (JULY- AUGUST 2012)
     Route: 065
  5. CLOZARIL [Suspect]
     Active Substance: CLOZAPINE
     Dosage: 50MG MANE AND 150MG NOCTE (START DATE:31-JUL-2012 )
     Route: 065
  6. CLOZARIL [Suspect]
     Active Substance: CLOZAPINE
     Dosage: 02-AUG-2012, TITRATION CONTINUED
     Route: 065
  7. CLOZARIL [Suspect]
     Active Substance: CLOZAPINE
     Dosage: 03-AUG-2012, CONTINUED
     Route: 065
  8. CLOZARIL [Suspect]
     Active Substance: CLOZAPINE
     Dosage: 04-AUG-2012, REDUCED TO 25MG MANE
     Route: 065
  9. CLOZARIL [Suspect]
     Active Substance: CLOZAPINE
     Dosage: 04-AUG-2012, THE PLANNED 100MG NOCTE DOSE WAS WITHHELD.
     Route: 065
  10. RISPERIDONE [Concomitant]
     Active Substance: RISPERIDONE
     Dosage: 6 MILLIGRAM (AT THE TIME OF STARTING CLOZAPINE)
     Route: 048
  11. RISPERIDONE [Concomitant]
     Active Substance: RISPERIDONE
     Dosage: 5 MILLIGRAM (REDUCED TO 5MG)
     Route: 065
  12. SERTRALINE [Concomitant]
     Active Substance: SERTRALINE HYDROCHLORIDE
     Dosage: 100 MILLIGRAM MANE
     Route: 065

REACTIONS (2)
  - Myocarditis [Unknown]
  - Therapy cessation [Unknown]

NARRATIVE: CASE EVENT DATE: 20120806
